FAERS Safety Report 5745429-4 (Version None)
Quarter: 2008Q2

REPORT INFORMATION
  Report Type: 
  Country: None (occurrence: None)
  Receive Date: 20080521
  Receipt Date: 20080516
  Transmission Date: 20081010
  Serious: Yes (Other)
  Sender: FDA-Public Use
  Company Number: DK-AVENTIS-200812841GDDC

PATIENT
  Age: 78 Year
  Sex: Female

DRUGS (9)
  1. TAXOTERE [Suspect]
     Route: 042
     Dates: start: 20080326, end: 20080326
  2. CYCLOPHOSPHAMIDE [Concomitant]
     Route: 042
     Dates: start: 20080122, end: 20080122
  3. CYCLOPHOSPHAMIDE [Concomitant]
     Route: 042
     Dates: start: 20080213, end: 20080213
  4. CYCLOPHOSPHAMIDE [Concomitant]
     Route: 042
     Dates: start: 20080304, end: 20080304
  5. EPIRUBICIN [Concomitant]
     Route: 042
     Dates: start: 20080122, end: 20080122
  6. EPIRUBICIN [Concomitant]
     Route: 042
     Dates: start: 20080213, end: 20080213
  7. EPIRUBICIN [Concomitant]
     Route: 042
     Dates: start: 20080304, end: 20080304
  8. COZAAR [Concomitant]
  9. BONIVA [Concomitant]
     Dosage: DOSE: UNK
     Route: 030

REACTIONS (2)
  - BRONCHOSPASM [None]
  - SENSE OF OPPRESSION [None]
